FAERS Safety Report 14985225 (Version 2)
Quarter: 2018Q3

REPORT INFORMATION
  Report Type: Report from Study
  Country: US (occurrence: US)
  Receive Date: 20180607
  Receipt Date: 20180710
  Transmission Date: 20181010
  Serious: Yes (Other)
  Sender: FDA-Public Use
  Company Number: PHEH2018US022238

PATIENT
  Sex: Female

DRUGS (1)
  1. COSENTYX [Suspect]
     Active Substance: SECUKINUMAB
     Indication: PSORIATIC ARTHROPATHY
     Dosage: 300 MG, QMO
     Route: 058

REACTIONS (9)
  - Rash [Unknown]
  - Therapeutic response shortened [Unknown]
  - Swelling face [Unknown]
  - Chest discomfort [Unknown]
  - Infection [Unknown]
  - Dyspnoea [Unknown]
  - Hypersensitivity [Unknown]
  - Headache [Unknown]
  - Dizziness [Unknown]
